FAERS Safety Report 6128625-6 (Version None)
Quarter: 2009Q1

REPORT INFORMATION
  Report Type: 
  Country: None (occurrence: None)
  Receive Date: 20090323
  Receipt Date: 20090311
  Transmission Date: 20090719
  Serious: Yes (Other)
  Sender: FDA-Public Use
  Company Number: NL-B.I. PHARMACEUTICALS,INC./RIDGEFIELD-2009-NL-00158NL

PATIENT
  Sex: Female

DRUGS (1)
  1. SIFROL [Suspect]
     Dosage: IS ON HER MAXIMUM DOSAGE

REACTIONS (2)
  - ECONOMIC PROBLEM [None]
  - GAMBLING [None]
